FAERS Safety Report 14974740 (Version 1)
Quarter: 2018Q2

REPORT INFORMATION
  Report Type: Spontaneous
  Country: FR (occurrence: FR)
  Receive Date: 20180605
  Receipt Date: 20180605
  Transmission Date: 20180711
  Serious: Yes (Life-Threatening, Other)
  Sender: FDA-Public Use
  Company Number: FR-PFIZER INC-2018228251

PATIENT
  Age: 68 Year
  Sex: Male
  Weight: 112 kg

DRUGS (9)
  1. ATTENTIN /00016602/ [Suspect]
     Active Substance: DEXTROAMPHETAMINE SULFATE
     Indication: NARCOLEPSY
     Dosage: 5 MG,ONCE DAILY
     Route: 048
     Dates: start: 20171121, end: 20171220
  2. EFFEXOR [Suspect]
     Active Substance: VENLAFAXINE HYDROCHLORIDE
     Indication: NARCOLEPSY
     Dosage: 300 MG, ONCE DAILY
     Dates: start: 2012
  3. INSULIN [Concomitant]
     Active Substance: INSULIN NOS
     Dosage: UNK
  4. LIRAGLUTIDE [Concomitant]
     Active Substance: LIRAGLUTIDE
     Indication: DIABETES MELLITUS
     Dosage: 10 IU, UNK
     Route: 065
  5. ATTENTIN /00016602/ [Suspect]
     Active Substance: DEXTROAMPHETAMINE SULFATE
     Dosage: 5 MG,ONCE DAILY
     Route: 048
     Dates: start: 20171221
  6. KALEORID LP [Suspect]
     Active Substance: POTASSIUM CHLORIDE
     Dosage: 1 DF, ONCE DAILY
  7. NOVONORM [Concomitant]
     Active Substance: REPAGLINIDE
     Indication: DIABETES MELLITUS
     Dosage: 6 DF, 1X/DAY
     Route: 065
  8. GLUCOPHAGE [Concomitant]
     Active Substance: METFORMIN HYDROCHLORIDE
     Indication: DIABETES MELLITUS
     Dosage: 3 DF, ONCE DAILY
     Route: 065
  9. ZYPREXA [Suspect]
     Active Substance: OLANZAPINE
     Indication: SLEEP DISORDER
     Dosage: 5 MG, ONCE DAILY

REACTIONS (5)
  - Cardio-respiratory arrest [Unknown]
  - Supraventricular extrasystoles [Unknown]
  - Ventricular fibrillation [Unknown]
  - Atrial fibrillation [Unknown]
  - Extrasystoles [Unknown]

NARRATIVE: CASE EVENT DATE: 20180103
